FAERS Safety Report 23225982 (Version 2)
Quarter: 2023Q4

REPORT INFORMATION
  Report Type: Spontaneous
  Country: US (occurrence: US)
  Receive Date: 20231124
  Receipt Date: 20231208
  Transmission Date: 20240110
  Serious: Yes (Hospitalization, Other)
  Sender: FDA-Public Use
  Company Number: US-MLMSERVICE-20230424-4245673-1

PATIENT

DRUGS (6)
  1. HYDROXYCHLOROQUINE [Suspect]
     Active Substance: HYDROXYCHLOROQUINE
     Indication: Rheumatoid arthritis
     Dosage: 400 MG, QD
  2. ASPIRIN [Concomitant]
     Active Substance: ASPIRIN
     Dosage: 81 MG, QD
  3. PREDNISONE [Concomitant]
     Active Substance: PREDNISONE
     Dosage: 5 MG, QD
  4. LEFLUNOMIDE [Concomitant]
     Active Substance: LEFLUNOMIDE
     Dosage: 20 MG, QD
  5. RITUXIMAB [Concomitant]
     Active Substance: RITUXIMAB
     Dosage: 1000MG Q4M EVERY 4 MONTHS
     Route: 042
  6. BUMETANIDE [Concomitant]
     Active Substance: BUMETANIDE
     Dosage: 1 MG, QD

REACTIONS (13)
  - Loss of personal independence in daily activities [Recovering/Resolving]
  - Dyspnoea [Recovering/Resolving]
  - Cardiac failure chronic [Recovering/Resolving]
  - Left ventricular failure [Recovering/Resolving]
  - Mitral valve incompetence [Recovering/Resolving]
  - Right ventricular dilatation [Recovering/Resolving]
  - Hypokinesia [Recovering/Resolving]
  - Left ventricular hypertrophy [Recovering/Resolving]
  - Pulmonary arterial hypertension [Recovering/Resolving]
  - Fatigue [Recovering/Resolving]
  - Toxicity to various agents [Recovering/Resolving]
  - Cardiomyopathy [Recovering/Resolving]
  - Bundle branch block left [Recovering/Resolving]
